FAERS Safety Report 8287316-6 (Version None)
Quarter: 2012Q2

REPORT INFORMATION
  Report Type: 
  Country: None (occurrence: None)
  Receive Date: 20120416
  Receipt Date: 20120416
  Transmission Date: 20120825
  Serious: Yes (Other)
  Sender: FDA-Public Use
  Company Number: None

PATIENT
  Age: 57 Year
  Sex: Female
  Weight: 62.142 kg

DRUGS (9)
  1. BUDESONIDE [Concomitant]
  2. BROVANA [Concomitant]
  3. THYROID TAB [Concomitant]
  4. ALENDRONATE SODIUM [Suspect]
     Indication: OSTEOPENIA
     Dosage: 70MG
     Route: 048
     Dates: start: 20120316, end: 20120330
  5. ,LISONIPRIL/HCTZ [Concomitant]
  6. ALBUTEROL [Concomitant]
  7. NORCO [Concomitant]
  8. ZYFLO CR [Concomitant]
  9. ALPRAZOLAM [Concomitant]

REACTIONS (10)
  - CHEMICAL BURN OF GASTROINTESTINAL TRACT [None]
  - MUSCULOSKELETAL CHEST PAIN [None]
  - PALPITATIONS [None]
  - BLOOD PRESSURE INCREASED [None]
  - ASTHMA [None]
  - WEIGHT DECREASED [None]
  - SWELLING FACE [None]
  - SWOLLEN TONGUE [None]
  - VOMITING [None]
  - CHEMICAL BURN OF SKIN [None]
